FAERS Safety Report 6603184-X (Version None)
Quarter: 2010Q1

REPORT INFORMATION
  Report Type: 
  Country: None (occurrence: None)
  Receive Date: 20100226
  Receipt Date: 20100216
  Transmission Date: 20100710
  Serious: No
  Sender: FDA-Public Use
  Company Number: US-B.I. PHARMACEUTICALS,INC./RIDGEFIELD-2010-BP-01874BP

PATIENT
  Age: 46 Year
  Sex: Male

DRUGS (2)
  1. VIRAMUNE [Suspect]
  2. TRUVADA [Concomitant]

REACTIONS (1)
  - RASH [None]
